FAERS Safety Report 11364291 (Version 1)
Quarter: 2015Q3

REPORT INFORMATION
  Report Type: Spontaneous
  Country: US (occurrence: None)
  Receive Date: 20150810
  Receipt Date: 20150810
  Transmission Date: 20151125
  Serious: Yes (Hospitalization)
  Sender: FDA-Public Use
  Company Number: None

PATIENT
  Age: 76 Year
  Sex: Female
  Weight: 88.45 kg

DRUGS (12)
  1. SYNTHROID [Concomitant]
     Active Substance: LEVOTHYROXINE SODIUM
  2. D3 WITH ZINC [Concomitant]
  3. ALEVE [Concomitant]
     Active Substance: NAPROXEN SODIUM
  4. VALSARTAN. [Concomitant]
     Active Substance: VALSARTAN
  5. AMLODIPINE BESYLATE. [Concomitant]
     Active Substance: AMLODIPINE BESYLATE
  6. LEVOFLOXACIN. [Suspect]
     Active Substance: LEVOFLOXACIN
     Indication: DIVERTICULITIS
     Dosage: 1 PILL
     Route: 048
     Dates: start: 20150328, end: 20150404
  7. SUPER B COMPLEX WITH C [Concomitant]
  8. ZYRTEC [Concomitant]
     Active Substance: CETIRIZINE HYDROCHLORIDE
  9. CALCIUM CARBONATE. [Concomitant]
     Active Substance: CALCIUM CARBONATE
  10. PROBIOTICS [Concomitant]
     Active Substance: PROBIOTICS NOS
  11. LEVOFLOXACIN. [Suspect]
     Active Substance: LEVOFLOXACIN
     Indication: INTESTINAL PERFORATION
     Dosage: 1 PILL
     Route: 048
     Dates: start: 20150328, end: 20150404
  12. XALATAN [Concomitant]
     Active Substance: LATANOPROST

REACTIONS (10)
  - Muscular weakness [None]
  - Discomfort [None]
  - Fatigue [None]
  - Balance disorder [None]
  - Weight bearing difficulty [None]
  - Gait disturbance [None]
  - Pain in extremity [None]
  - Rash erythematous [None]
  - Dysstasia [None]
  - Abasia [None]

NARRATIVE: CASE EVENT DATE: 20150405
